FAERS Safety Report 11686122 (Version 1)
Quarter: 2015Q4

REPORT INFORMATION
  Report Type: Report from Study
  Country: US (occurrence: US)
  Receive Date: 20151030
  Receipt Date: 20151030
  Transmission Date: 20160304
  Serious: Yes (Hospitalization)
  Sender: FDA-Public Use
  Company Number: US-ROCHE-1650451

PATIENT
  Age: 57 Year
  Sex: Female

DRUGS (6)
  1. BEVACIZUMAB [Suspect]
     Active Substance: BEVACIZUMAB
     Indication: GLIOBLASTOMA
     Dosage: 10 MG/KG ON DAYS 1 AND 15
     Route: 042
     Dates: start: 20150415
  2. SYNTHROID [Concomitant]
     Active Substance: LEVOTHYROXINE SODIUM
  3. PEMBROLIZUMAB. [Suspect]
     Active Substance: PEMBROLIZUMAB
     Indication: PRODUCT USED FOR UNKNOWN INDICATION
     Route: 065
  4. MLN0128 [Suspect]
     Active Substance: SAPANISERTIB
     Indication: GLIOBLASTOMA
     Dosage: LAST DOSE OF ADMINISTRATION03/JUN/2015
     Route: 048
     Dates: start: 20150415
  5. DECADRON [Concomitant]
     Active Substance: DEXAMETHASONE
     Route: 065
  6. DECADRON [Concomitant]
     Active Substance: DEXAMETHASONE
     Route: 065

REACTIONS (8)
  - Somnolence [Unknown]
  - Mental impairment [Unknown]
  - White blood cell count decreased [Unknown]
  - Urinary incontinence [Unknown]
  - Platelet count decreased [Unknown]
  - Asthenia [Unknown]
  - Encephalopathy [Unknown]
  - Faecal incontinence [Unknown]

NARRATIVE: CASE EVENT DATE: 20150604
